FAERS Safety Report 21208484 (Version 1)
Quarter: 2022Q3

REPORT INFORMATION
  Report Type: Spontaneous
  Country: US (occurrence: US)
  Receive Date: 20220812
  Receipt Date: 20220812
  Transmission Date: 20221026
  Serious: No
  Sender: FDA-Public Use
  Company Number: US-MYLANLABS-2022M1084454

PATIENT
  Age: 50 Year
  Sex: Female
  Weight: 58.97 kg

DRUGS (2)
  1. ESTRADIOL TRANSDERMAL SYSTEM [Suspect]
     Active Substance: ESTRADIOL
     Indication: Hormone replacement therapy
     Dosage: 0.05 MILLIGRAM, QD (ONCE WEEKLY)
     Route: 062
     Dates: start: 20220717, end: 20220727
  2. PROGESTERONE [Concomitant]
     Active Substance: PROGESTERONE
     Indication: Hormone level abnormal
     Dosage: 100 MILLIGRAM, HS
     Route: 065

REACTIONS (6)
  - Product intolerance [Unknown]
  - Application site pain [Unknown]
  - Anger [Unknown]
  - Hot flush [Unknown]
  - Application site pruritus [Unknown]
  - Application site erythema [Unknown]

NARRATIVE: CASE EVENT DATE: 20220717
